FAERS Safety Report 6369118-0 (Version None)
Quarter: 2009Q3

REPORT INFORMATION
  Report Type: 
  Country: None (occurrence: None)
  Receive Date: 20090922
  Receipt Date: 20090907
  Transmission Date: 20100115
  Serious: Yes (Hospitalization)
  Sender: FDA-Public Use
  Company Number: FR-GENENTECH-290723

PATIENT
  Sex: Male

DRUGS (10)
  1. MABTHERA [Suspect]
     Indication: DIFFUSE LARGE B-CELL LYMPHOMA
  2. METHOTREXATE [Suspect]
     Indication: DIFFUSE LARGE B-CELL LYMPHOMA
     Dosage: UNK
     Route: 042
     Dates: start: 20090613
  3. ETOPOSIDE [Suspect]
     Indication: DIFFUSE LARGE B-CELL LYMPHOMA
     Dosage: UNK
     Route: 042
     Dates: start: 20090614, end: 20090614
  4. CARMUSTINE [Concomitant]
     Indication: DRUG USE FOR UNKNOWN INDICATION
     Dosage: UNK
     Dates: start: 20090614
  5. LEXOMIL [Concomitant]
     Indication: DRUG USE FOR UNKNOWN INDICATION
  6. CONTRAMAL [Concomitant]
     Indication: DRUG USE FOR UNKNOWN INDICATION
  7. CORTANCYL [Concomitant]
     Indication: DRUG USE FOR UNKNOWN INDICATION
  8. DEROXAT [Concomitant]
     Indication: DRUG USE FOR UNKNOWN INDICATION
  9. ATARAX [Concomitant]
     Indication: DRUG USE FOR UNKNOWN INDICATION
  10. KEPPRA [Concomitant]
     Indication: DRUG USE FOR UNKNOWN INDICATION

REACTIONS (2)
  - DIABETES INSIPIDUS [None]
  - HYPERNATRAEMIA [None]
